FAERS Safety Report 6007667-5 (Version None)
Quarter: 2008Q4

REPORT INFORMATION
  Report Type: 
  Country: None (occurrence: None)
  Receive Date: 20081217
  Receipt Date: 20080402
  Transmission Date: 20090506
  Serious: No
  Sender: FDA-Public Use
  Company Number: US-ASTRAZENECA-2008UW06573

PATIENT
  Sex: Male

DRUGS (4)
  1. CRESTOR [Suspect]
     Route: 048
  2. PLAVIX [Suspect]
     Indication: MYOCARDIAL INFARCTION
     Dates: start: 20070301
  3. PLAVIX [Suspect]
     Indication: STENT PLACEMENT
     Dates: start: 20070301
  4. LOPRESSOR [Suspect]

REACTIONS (1)
  - ALOPECIA [None]
